FAERS Safety Report 5263060-4 (Version None)
Quarter: 2007Q1

REPORT INFORMATION
  Report Type: 
  Country: None (occurrence: None)
  Receive Date: 20070312
  Receipt Date: 20070228
  Transmission Date: 20070707
  Serious: Yes (Hospitalization, Other)
  Sender: FDA-Public Use
  Company Number: US-PFIZER INC-2005140611

PATIENT
  Sex: Male

DRUGS (8)
  1. NEURONTIN [Suspect]
     Indication: ATTENTION DEFICIT/HYPERACTIVITY DISORDER
  2. NEURONTIN [Suspect]
     Indication: LIMB DISCOMFORT
  3. NEURONTIN [Suspect]
     Indication: MIGRAINE
  4. NEURONTIN [Suspect]
     Indication: ESSENTIAL TREMOR
  5. LEXAPRO [Concomitant]
  6. HYDROCODONE BITARTRATE + ACETAMINOPHEN [Concomitant]
  7. TOPROL-XL [Concomitant]
  8. TOPAMAX [Concomitant]

REACTIONS (4)
  - DRUG INEFFECTIVE [None]
  - OVERDOSE [None]
  - SELF MUTILATION [None]
  - SUICIDE ATTEMPT [None]
